FAERS Safety Report 5008152-X (Version None)
Quarter: 2006Q2

REPORT INFORMATION
  Report Type: 
  Country: None (occurrence: None)
  Receive Date: 20060522
  Receipt Date: 20060414
  Transmission Date: 20061013
  Serious: Yes (Hospitalization)
  Sender: FDA-Public Use
  Company Number: IT-ABBOTT-06P-083-0330935-00

PATIENT
  Sex: Male

DRUGS (6)
  1. DEPAKENE [Suspect]
     Indication: GRAND MAL CONVULSION
     Route: 048
     Dates: start: 20040701
  2. DEPAKENE [Suspect]
     Indication: TONIC CONVULSION
  3. DEPAKENE [Suspect]
     Indication: EPILEPSY
  4. TOPIRAMATE [Suspect]
     Indication: GRAND MAL CONVULSION
     Route: 048
     Dates: start: 20060210
  5. TOPIRAMATE [Suspect]
     Indication: TONIC CONVULSION
  6. TOPIRAMATE [Suspect]
     Indication: EPILEPSY

REACTIONS (3)
  - PNEUMONIA MYCOPLASMAL [None]
  - RED BLOOD CELL COUNT DECREASED [None]
  - UPPER RESPIRATORY TRACT INFECTION [None]
